FAERS Safety Report 23627007 (Version 1)
Quarter: 2024Q1

REPORT INFORMATION
  Report Type: Report from Study
  Country: NL (occurrence: NL)
  Receive Date: 20240313
  Receipt Date: 20240313
  Transmission Date: 20240410
  Serious: No
  Sender: FDA-Public Use
  Company Number: NL-SPRINGWORKS THERAPEUTICS-SW-001206

PATIENT
  Age: 38 Year

DRUGS (2)
  1. NIROGACESTAT [Suspect]
     Active Substance: NIROGACESTAT
     Indication: Desmoid tumour
     Dosage: UNK
     Dates: start: 20231012
  2. NIROGACESTAT [Suspect]
     Active Substance: NIROGACESTAT
     Dosage: 100 MILLIGRAM, BID
     Dates: start: 20231127

REACTIONS (1)
  - Diarrhoea [Unknown]
